FAERS Safety Report 10254626 (Version 3)
Quarter: 2014Q2

REPORT INFORMATION
  Report Type: Report from Study
  Country: CA (occurrence: CA)
  Receive Date: 20140624
  Receipt Date: 20140625
  Transmission Date: 20141212
  Serious: Yes (Death)
  Sender: FDA-Public Use
  Company Number: PHHY2014CA052256

PATIENT
  Age: 57 Year
  Sex: Male

DRUGS (2)
  1. SANDOSTATIN LAR [Suspect]
     Indication: LUNG DISORDER
     Dosage: 20 MG, ONCE EVERY MONTH
     Route: 030
     Dates: start: 20140327
  2. SANDOSTATIN LAR [Suspect]
     Indication: OFF LABEL USE
     Dosage: 30 MG, Q4 WEEKS
     Route: 030

REACTIONS (3)
  - Lung disorder [Fatal]
  - Blood pressure systolic increased [Unknown]
  - Increased upper airway secretion [Unknown]
